FAERS Safety Report 8762840 (Version 1)
Quarter: 2012Q4

REPORT INFORMATION
  Report Type: 
  Country: US (occurrence: US)
  Receive Date: 20120829
  Receipt Date: 20120829
  Transmission Date: 20130627
  Serious: No
  Sender: FDA-Public Use
  Company Number: US-PFIZER INC-2012208848

PATIENT
  Age: 60 Year
  Sex: Male
  Weight: 100.68 kg

DRUGS (7)
  1. VIAGRA [Suspect]
     Indication: ERECTILE DYSFUNCTION
     Dosage: UNK
  2. SINGULAIR [Concomitant]
     Dosage: UNK,daily
  3. OXYCODONE [Concomitant]
     Dosage: UNK,daily
  4. CODEINE [Concomitant]
     Dosage: UNK,daily
  5. EFFEXOR [Concomitant]
     Dosage: UNK,daily
  6. RELPAX [Concomitant]
     Dosage: UNK,daily
  7. ALLEGRA [Concomitant]
     Dosage: UNK,daily

REACTIONS (2)
  - Haematospermia [Unknown]
  - Erection increased [Not Recovered/Not Resolved]
